FAERS Safety Report 6980422-5 (Version None)
Quarter: 2010Q3

REPORT INFORMATION
  Report Type: 
  Country: None (occurrence: None)
  Receive Date: 20100914
  Receipt Date: 20100331
  Transmission Date: 20110219
  Serious: No
  Sender: FDA-Public Use
  Company Number: US-ABBOTT-10P-163-0636585-00

PATIENT
  Sex: Female
  Weight: 41.768 kg

DRUGS (2)
  1. DEPAKOTE [Suspect]
     Indication: MYOCLONIC EPILEPSY
     Route: 048
  2. OMEPRAZOLE [Concomitant]
     Indication: PRODUCT USED FOR UNKNOWN INDICATION
     Route: 048

REACTIONS (1)
  - HEAD INJURY [None]
